FAERS Safety Report 10529461 (Version 2)
Quarter: 2014Q4

REPORT INFORMATION
  Report Type: Spontaneous
  Country: US (occurrence: US)
  Receive Date: 20141021
  Receipt Date: 20141021
  Transmission Date: 20150528
  Serious: Yes (Other)
  Sender: FDA-Public Use
  Company Number: US-UNITED THERAPEUTICS-UNT-2014-009047

PATIENT
  Age: 71 Year
  Sex: Female
  Weight: 54.42 kg

DRUGS (2)
  1. REMODULIN [Suspect]
     Active Substance: TREPROSTINIL
     Indication: COR PULMONALE CHRONIC
     Dosage: 0.016875 ?G/KG, CONTINUING
     Route: 041
     Dates: start: 20140409, end: 20141001
  2. REMODULIN [Suspect]
     Active Substance: TREPROSTINIL
     Dosage: UNK
     Route: 041
     Dates: start: 20140323, end: 20141001

REACTIONS (1)
  - Quality of life decreased [Unknown]

NARRATIVE: CASE EVENT DATE: 20141004
